FAERS Safety Report 6163339-8 (Version None)
Quarter: 2009Q2

REPORT INFORMATION
  Report Type: 
  Country: None (occurrence: None)
  Receive Date: 20090420
  Receipt Date: 20090420
  Transmission Date: 20091009
  Serious: No
  Sender: FDA-Public Use
  Company Number: None

PATIENT
  Age: 64 Year
  Sex: Male
  Weight: 67.6 kg

DRUGS (8)
  1. VARENICLINE [Suspect]
     Indication: SMOKING CESSATION THERAPY
     Dosage: 1 MG BID PO
     Route: 048
     Dates: start: 20070516, end: 20071108
  2. ALBUTEROL/IPRATROPTUM ORAL INHALER [Concomitant]
  3. FORMOTEROL INH PWDR CAP [Concomitant]
  4. GUAIFENESIN [Concomitant]
  5. HYDROCHLOROTHIAZIDE [Concomitant]
  6. LISINOPRIL [Concomitant]
  7. METOPROLOL [Concomitant]
  8. OMEPRAZOLE [Concomitant]

REACTIONS (2)
  - ABDOMINAL PAIN [None]
  - CONSTIPATION [None]
